FAERS Safety Report 6836859-8 (Version None)
Quarter: 2010Q3

REPORT INFORMATION
  Report Type: 
  Country: None (occurrence: None)
  Receive Date: 20100713
  Receipt Date: 20070430
  Transmission Date: 20110219
  Serious: No
  Sender: FDA-Public Use
  Company Number: US-PFIZER INC-2007036014

PATIENT
  Sex: Female

DRUGS (14)
  1. CHANTIX [Suspect]
     Indication: SMOKING CESSATION THERAPY
     Dates: start: 20060822
  2. ALL OTHER THERAPEUTIC PRODUCTS [Concomitant]
  3. PREVACID [Concomitant]
  4. SPIRONOLACTONE [Concomitant]
  5. ACCOLATE [Concomitant]
  6. SPIRIVA [Concomitant]
     Dosage: ONE PUFF
  7. ATROVENT [Concomitant]
  8. ZOLOFT [Concomitant]
  9. WELLBUTRIN [Concomitant]
  10. LAMICTAL [Concomitant]
  11. GEODON [Concomitant]
  12. CLONAZEPAM [Concomitant]
  13. ALPRAZOLAM [Concomitant]
  14. ESTRADERM [Concomitant]
     Route: 062

REACTIONS (2)
  - DRUG INEFFECTIVE [None]
  - DYSGEUSIA [None]
